FAERS Safety Report 9730353 (Version 2)
Quarter: 2013Q4

REPORT INFORMATION
  Report Type: Spontaneous
  Country: SG (occurrence: SG)
  Receive Date: 20131204
  Receipt Date: 20131204
  Transmission Date: 20140711
  Serious: Yes (Hospitalization, Other)
  Sender: FDA-Public Use
  Company Number: SG-ROCHE-1295328

PATIENT
  Age: 54 Year
  Sex: Female
  Weight: 57.6 kg

DRUGS (3)
  1. PERTUZUMAB [Suspect]
     Indication: BREAST CANCER METASTATIC
     Route: 050
     Dates: start: 20130429, end: 201308
  2. HERCEPTIN [Concomitant]
     Indication: BREAST CANCER METASTATIC
     Route: 042
     Dates: start: 20130429, end: 201308
  3. TAXOTERE [Concomitant]
     Indication: BREAST CANCER METASTATIC
     Route: 042
     Dates: start: 20130429

REACTIONS (5)
  - Dyspnoea [Recovering/Resolving]
  - Chest discomfort [Unknown]
  - Ejection fraction decreased [Unknown]
  - Pleural effusion [Not Recovered/Not Resolved]
  - Pericardial effusion [Recovered/Resolved]
